FAERS Safety Report 19708220 (Version 1)
Quarter: 2021Q3

REPORT INFORMATION
  Report Type: Spontaneous
  Country: PT (occurrence: PT)
  Receive Date: 20210816
  Receipt Date: 20210816
  Transmission Date: 20211014
  Serious: Yes (Other)
  Sender: FDA-Public Use
  Company Number: PT-MYLANLABS-2021M1051207

PATIENT
  Age: 43 Year
  Sex: Female

DRUGS (5)
  1. ZIPRASIDONE. [Suspect]
     Active Substance: ZIPRASIDONE
     Indication: MANIA
     Dosage: 80 MILLIGRAM, QD IN 2 DOSES AFTER LUNCH AND DINNER
     Route: 065
  2. DIAZEPAM. [Concomitant]
     Active Substance: DIAZEPAM
     Indication: MANIA
     Dosage: 20 MILLIGRAM, QD
     Route: 065
  3. VALPROIC ACID. [Concomitant]
     Active Substance: VALPROIC ACID
     Indication: MANIA
     Dosage: 1000 MILLIGRAM, QD
     Route: 065
  4. ARIPIPRAZOLE. [Suspect]
     Active Substance: ARIPIPRAZOLE
     Indication: MANIA
     Dosage: 30 MILLIGRAM, QD
     Route: 065
  5. DIAZEPAM. [Concomitant]
     Active Substance: DIAZEPAM
     Dosage: 10 MILLIGRAM, QD
     Route: 065

REACTIONS (2)
  - Toxic skin eruption [Recovered/Resolved]
  - Extrapyramidal disorder [Unknown]
